FAERS Safety Report 6955813-9 (Version None)
Quarter: 2010Q3

REPORT INFORMATION
  Report Type: 
  Country: None (occurrence: None)
  Receive Date: 20100830
  Receipt Date: 20100617
  Transmission Date: 20110219
  Serious: No
  Sender: FDA-Public Use
  Company Number: US-AMGEN-KDL419239

PATIENT
  Sex: Male

DRUGS (2)
  1. NPLATE [Suspect]
     Indication: IDIOPATHIC THROMBOCYTOPENIC PURPURA
     Dates: start: 20091202
  2. CORTICOSTEROIDS [Concomitant]
     Dates: start: 20091202

REACTIONS (3)
  - DYSURIA [None]
  - PHARYNGITIS [None]
  - URINE ODOUR ABNORMAL [None]
